FAERS Safety Report 24421668 (Version 1)
Quarter: 2024Q4

REPORT INFORMATION
  Report Type: Spontaneous
  Country: US (occurrence: US)
  Receive Date: 20241010
  Receipt Date: 20241010
  Transmission Date: 20250115
  Serious: Yes (Death, Life-Threatening, Hospitalization, Other)
  Sender: AUROBINDO
  Company Number: US-MLMSERVICE-20240923-PI202041-00177-1

PATIENT
  Age: 26 Year
  Sex: Male

DRUGS (8)
  1. HYDROCORTISONE [Suspect]
     Active Substance: HYDROCORTISONE
     Indication: Adrenal insufficiency
     Dosage: INITIATED AND WAS CONTINUED ON HYDROCORTISONE 20 MG
     Route: 065
  2. HYDROCORTISONE [Suspect]
     Active Substance: HYDROCORTISONE
     Indication: Inappropriate antidiuretic hormone secretion
  3. ATOVAQUONE [Suspect]
     Active Substance: ATOVAQUONE
     Indication: Adrenal insufficiency
     Dosage: UNK
     Route: 065
  4. LEUCOVORIN [Suspect]
     Active Substance: LEUCOVORIN\LEUCOVORIN CALCIUM
     Indication: Adrenal insufficiency
     Dosage: UNK
     Route: 065
  5. PYRIMETHAMINE [Suspect]
     Active Substance: PYRIMETHAMINE
     Indication: Adrenal insufficiency
     Dosage: UNK
     Route: 065
  6. FLUCONAZOLE [Concomitant]
     Active Substance: FLUCONAZOLE
     Indication: Pneumonia
     Dosage: UNK
     Route: 065
  7. FLUCONAZOLE [Concomitant]
     Active Substance: FLUCONAZOLE
     Indication: Evidence based treatment
  8. LEUCOVORIN [Concomitant]
     Active Substance: LEUCOVORIN\LEUCOVORIN CALCIUM
     Indication: Product used for unknown indication
     Dosage: UNK
     Route: 065

REACTIONS (3)
  - Respiratory failure [Fatal]
  - Disease progression [Fatal]
  - Kaposi^s sarcoma [Fatal]
